FAERS Safety Report 22097102 (Version 1)
Quarter: 2023Q1

REPORT INFORMATION
  Report Type: Other
  Country: IN (occurrence: None)
  Receive Date: 20230315
  Receipt Date: 20230315
  Transmission Date: 20230418
  Serious: Yes (Hospitalization)
  Sender: FDA-Public Use
  Company Number: IN-ROCHE-3307832

PATIENT
  Age: 55 Year
  Sex: Female

DRUGS (1)
  1. PHESGO [Suspect]
     Active Substance: HYALURONIDASE-ZZXF\PERTUZUMAB\TRASTUZUMAB
     Indication: Breast cancer
     Dosage: INTERVAL 21 DAYS
     Route: 058
     Dates: start: 20230210

REACTIONS (4)
  - White blood cell count decreased [Unknown]
  - Full blood count decreased [Unknown]
  - Diarrhoea [Unknown]
  - Vomiting [Unknown]
